FAERS Safety Report 4380440-X (Version None)
Quarter: 2004Q2

REPORT INFORMATION
  Report Type: 
  Country: None (occurrence: None)
  Receive Date: 20040614
  Receipt Date: 20040602
  Transmission Date: 20050107
  Serious: Yes (Life-Threatening)
  Sender: FDA-Public Use
  Company Number: 2004217230FR

PATIENT
  Age: 67 Year
  Sex: Female
  Weight: 100 kg

DRUGS (10)
  1. FRAGMIN [Suspect]
     Dosage: 5000 U, QD, SUBCUTANEOUS
     Route: 058
     Dates: start: 20040410, end: 20040414
  2. SOLU-MEDROL [Suspect]
     Dosage: 120 MG, BID, IV
     Route: 042
     Dates: start: 20040409
  3. MEDROL [Suspect]
     Dosage: 48 MG, QD, ORAL
     Route: 048
     Dates: start: 20040317, end: 20040409
  4. PREDNISOLONE [Suspect]
     Dosage: 50 MG, QD, ORAL
     Route: 048
     Dates: start: 20040413, end: 20040414
  5. MS CONTIN [Concomitant]
  6. LERCANIDIPINE [Concomitant]
  7. DOMPERIDONE [Concomitant]
  8. LYTOS (CLODRONATE DISODIUM) [Concomitant]
  9. AROMASINE [Concomitant]
  10. FRAGMIN [Suspect]
     Dosage: 5000 U, QD, SUBCUTANEOUS
     Route: 058
     Dates: start: 20040417

REACTIONS (15)
  - ACTIVATED PARTIAL THROMBOPLASTIN TIME SHORTENED [None]
  - ANAEMIA [None]
  - BLOOD CREATININE DECREASED [None]
  - BLOOD FIBRINOGEN INCREASED [None]
  - DRUG INTERACTION [None]
  - DUODENAL ULCER [None]
  - GASTRIC ULCER HAEMORRHAGE [None]
  - HAEMATEMESIS [None]
  - HYPOVOLAEMIC SHOCK [None]
  - MELAENA [None]
  - METABOLIC ACIDOSIS [None]
  - OESOPHAGEAL ULCER HAEMORRHAGE [None]
  - OXYGEN SATURATION DECREASED [None]
  - PARESIS [None]
  - PROTHROMBIN TIME PROLONGED [None]
